FAERS Safety Report 17364338 (Version 1)
Quarter: 2020Q1

REPORT INFORMATION
  Report Type: Spontaneous
  Country: US (occurrence: US)
  Receive Date: 20200204
  Receipt Date: 20200204
  Transmission Date: 20200409
  Serious: Yes (Hospitalization)
  Sender: FDA-Public Use
  Company Number: US-ROCHE-2538421

PATIENT
  Age: 45 Year
  Sex: Male

DRUGS (1)
  1. PULMOZYME [Suspect]
     Active Substance: DORNASE ALFA
     Indication: PRODUCT USED FOR UNKNOWN INDICATION
     Dosage: 1 MG/ML  AMP*REFRIG
     Route: 055
     Dates: start: 2001

REACTIONS (2)
  - Influenza [Unknown]
  - Lung disorder [Unknown]

NARRATIVE: CASE EVENT DATE: 20190101
